FAERS Safety Report 10384380 (Version 1)
Quarter: 2014Q1

REPORT INFORMATION
  Report Type: Spontaneous
  Country: US (occurrence: None)
  Receive Date: 20140306
  Receipt Date: 20140306
  Transmission Date: 20141002
  Serious: Yes (Other)
  Sender: FDA-Public Use
  Company Number: 163-21880-13053398

PATIENT
  Age: 54 Year
  Sex: Female
  Weight: 84.37 kg

DRUGS (5)
  1. REVLIMIB (LENALIDOMIDE) (10 MILLIGRAM, CAPSULES) [Suspect]
     Indication: MYELODYSPLASTIC SYNDROME
     Route: 048
     Dates: start: 20130423
  2. JANUMET [Concomitant]
  3. VITAMIN D (ERGOCALCIFEROL) [Concomitant]
  4. ASA (ACETYLSALICYLIC ACID) [Concomitant]
  5. ZYRTEC (CETIRIZINE HYDROCHLORIDE) [Concomitant]

REACTIONS (4)
  - Haemoglobin decreased [None]
  - Fatigue [None]
  - Diarrhoea [None]
  - Full blood count decreased [None]
